FAERS Safety Report 5589347-3 (Version None)
Quarter: 2008Q1

REPORT INFORMATION
  Report Type: 
  Country: None (occurrence: None)
  Receive Date: 20080114
  Receipt Date: 20080103
  Transmission Date: 20080703
  Serious: Yes (Other)
  Sender: FDA-Public Use
  Company Number: US-JNJFOC-20070902954

PATIENT
  Sex: Female
  Weight: 122.47 kg

DRUGS (13)
  1. TYLENOL (CAPLET) [Suspect]
  2. TYLENOL (CAPLET) [Suspect]
     Indication: PAIN
  3. UNSPECIFIED MEDICATION [Concomitant]
     Indication: RESTLESS LEGS SYNDROME
  4. ASPIRIN [Concomitant]
     Indication: CARDIAC DISORDER
  5. UNSPECIFIED HIGH CHOLESTEROL MEDICATION [Concomitant]
     Indication: BLOOD CHOLESTEROL INCREASED
  6. IRON PILLS [Concomitant]
  7. ALLOPURINOL [Concomitant]
     Indication: GOUT
  8. BYETTA [Concomitant]
  9. METFORMIN HCL [Concomitant]
     Indication: DIABETES MELLITUS
  10. GLYBURIDE [Concomitant]
  11. GLUCOPHAGE [Concomitant]
  12. METOPROLOL [Concomitant]
     Indication: HYPERTENSION
  13. NITROGLYCERIN [Concomitant]
     Indication: CARDIAC DISORDER

REACTIONS (2)
  - ANAEMIA [None]
  - HAEMATOCHEZIA [None]
